FAERS Safety Report 9539832 (Version 1)
Quarter: 2013Q3

REPORT INFORMATION
  Report Type: Spontaneous
  Country: US (occurrence: US)
  Receive Date: 20130920
  Receipt Date: 20130920
  Transmission Date: 20140515
  Serious: No
  Sender: FDA-Public Use
  Company Number: US-PURDUE-USA-2011-0063246

PATIENT
  Age: 31 Year
  Sex: Male
  Weight: 90.7 kg

DRUGS (4)
  1. DILAUDID TABLET [Suspect]
     Indication: PAIN
     Dosage: UNK
     Dates: start: 20110115, end: 20110116
  2. PROTONIX [Suspect]
     Indication: GASTRITIS
     Dosage: UNK
     Dates: start: 20110115
  3. ZOLOFT [Concomitant]
     Indication: DEPRESSION
     Dosage: 50 MG, DAILY
     Route: 048
  4. OMEPRAZOLE [Concomitant]
     Indication: GASTRITIS

REACTIONS (3)
  - Oropharyngeal pain [Unknown]
  - Headache [Unknown]
  - Cold sweat [Unknown]
